FAERS Safety Report 22014321 (Version 2)
Quarter: 2023Q1

REPORT INFORMATION
  Report Type: Report from Study
  Country: US (occurrence: US)
  Receive Date: 20230221
  Receipt Date: 20230307
  Transmission Date: 20230417
  Serious: Yes (Other)
  Sender: FDA-Public Use
  Company Number: US-BEIGENE USA INC-BGN-2023-001193

PATIENT

DRUGS (1)
  1. BRUKINSA [Suspect]
     Active Substance: ZANUBRUTINIB
     Indication: Chronic lymphocytic leukaemia
     Dosage: 320 MILLIGRAM, QD
     Route: 048
     Dates: start: 20230216

REACTIONS (18)
  - Neuropathy peripheral [Unknown]
  - Dizziness [Not Recovered/Not Resolved]
  - Dry mouth [Not Recovered/Not Resolved]
  - Headache [Not Recovered/Not Resolved]
  - Pain in extremity [Not Recovered/Not Resolved]
  - Arthralgia [Not Recovered/Not Resolved]
  - Myalgia [Not Recovered/Not Resolved]
  - Dyspnoea [Unknown]
  - Hypoaesthesia [Unknown]
  - Asthma [Unknown]
  - Blood calcium increased [Unknown]
  - Blood lactate dehydrogenase increased [Unknown]
  - Hypertension [Unknown]
  - Fatigue [Unknown]
  - Joint injury [Unknown]
  - Nausea [Unknown]
  - Decreased appetite [Unknown]
  - Limb injury [Unknown]

NARRATIVE: CASE EVENT DATE: 20230217
